FAERS Safety Report 13355936 (Version 1)
Quarter: 2017Q1

REPORT INFORMATION
  Report Type: Spontaneous
  Country: TR (occurrence: TR)
  Receive Date: 20170321
  Receipt Date: 20170321
  Transmission Date: 20170429
  Serious: Yes (Other)
  Sender: FDA-Public Use
  Company Number: TR-BAYER-2017-053898

PATIENT
  Age: 28 Year
  Sex: Female

DRUGS (1)
  1. CORASPIN 100 MG [Suspect]
     Active Substance: ASPIRIN
     Indication: DEEP VEIN THROMBOSIS
     Dosage: 100 MG, QD
     Route: 064

REACTIONS (3)
  - Maternal exposure during pregnancy [None]
  - Abortion spontaneous [None]
  - Off label use [None]
